FAERS Safety Report 4978953-2 (Version None)
Quarter: 2006Q2

REPORT INFORMATION
  Report Type: 
  Country: None (occurrence: None)
  Receive Date: 20060419
  Receipt Date: 20060419
  Transmission Date: 20061013
  Serious: Yes (Hospitalization, Other)
  Sender: FDA-Public Use
  Company Number: None

PATIENT
  Age: 56 Year
  Sex: Male
  Weight: 113.9 kg

DRUGS (21)
  1. HEPARIN [Suspect]
     Indication: AORTIC VALVE REPLACEMENT
     Dates: start: 20060111
  2. HEPARIN [Suspect]
     Indication: AORTIC VALVE REPLACEMENT
     Dates: start: 20060130
  3. ACETAMINOPHEN AND HYDROCODONE BITARTRATE [Concomitant]
  4. COMBIVENT [Concomitant]
  5. PEPCID [Concomitant]
  6. VANCOMYCIN [Concomitant]
  7. DSS [Concomitant]
  8. LASIX [Concomitant]
  9. ASPIRIN [Concomitant]
  10. MORPHINE [Concomitant]
  11. KETOROLAC TROMETHAMINE [Concomitant]
  12. MAGNESSIUM OXIDE [Concomitant]
  13. METOPROLOL [Concomitant]
  14. PANTOPRAZOLE [Concomitant]
  15. ALBUMIN [Concomitant]
  16. FENTANYL [Concomitant]
  17. MILRINONE [Concomitant]
  18. PROPOFOL [Concomitant]
  19. AMIODARONE [Concomitant]
  20. POTASSIUM CHLORIDE [Concomitant]
  21. PLAVIX [Concomitant]

REACTIONS (2)
  - PLATELET COUNT DECREASED [None]
  - PLATELET DISORDER [None]
